FAERS Safety Report 8482274-3 (Version None)
Quarter: 2012Q3

REPORT INFORMATION
  Report Type: 
  Country: None (occurrence: None)
  Receive Date: 20120702
  Receipt Date: 20120628
  Transmission Date: 20120928
  Serious: Yes (Other)
  Sender: FDA-Public Use
  Company Number: PHEH2012US011476

PATIENT
  Sex: Male

DRUGS (1)
  1. EXELON [Suspect]
     Indication: EMOTIONAL DISORDER
     Dosage: UNK UKN, UNK
     Route: 062

REACTIONS (1)
  - PARKINSON'S DISEASE [None]
